FAERS Safety Report 14491077 (Version 5)
Quarter: 2018Q2

REPORT INFORMATION
  Report Type: Spontaneous
  Country: US (occurrence: US)
  Receive Date: 20180206
  Receipt Date: 20180625
  Transmission Date: 20180711
  Serious: No
  Sender: FDA-Public Use
  Company Number: US-PFIZER INC-2018050273

PATIENT
  Age: 72 Year
  Sex: Female
  Weight: 50.79 kg

DRUGS (2)
  1. ROSUVASTATIN. [Suspect]
     Active Substance: ROSUVASTATIN
     Indication: BLOOD CHOLESTEROL ABNORMAL
     Dosage: UNK, (DOSE WAS 5-10 MG, ONLY TOOK FOR ABOUT 3 DAYS)
     Dates: start: 201712, end: 201712
  2. ATORVASTATIN CALCIUM. [Suspect]
     Active Substance: ATORVASTATIN CALCIUM
     Indication: BLOOD CHOLESTEROL INCREASED
     Dosage: UNK; (SHE WOULD GUESS 5-10 MG, SHE ONLY TOOK IT FOR 3 DAYS)
     Dates: start: 201712, end: 201712

REACTIONS (5)
  - Drug ineffective [Unknown]
  - Drug hypersensitivity [Unknown]
  - Stomatitis [Not Recovered/Not Resolved]
  - Wound [Unknown]
  - Oral mucosal exfoliation [Not Recovered/Not Resolved]
